FAERS Safety Report 8556863-1 (Version None)
Quarter: 2012Q2

REPORT INFORMATION
  Report Type: 
  Country: None (occurrence: None)
  Receive Date: 20120418
  Receipt Date: 20100423
  Transmission Date: 20120825
  Serious: Yes (Other)
  Sender: FDA-Public Use
  Company Number: PHEH2007US03973

PATIENT
  Age: 61 Year
  Sex: Female
  Weight: 67.1 kg

DRUGS (7)
  1. ESTRADERM [Suspect]
     Indication: MENOPAUSE
     Dosage: 0.1 (UNITS NOT SPEC.) 2X WEEKLY, TRANSDERMAL
     Route: 062
     Dates: start: 19910818, end: 19911001
  2. PREMPRO [Suspect]
     Indication: MENOPAUSE
     Dosage: 0.625/2.5 MG, ORAL
     Route: 048
     Dates: start: 19950501, end: 19990112
  3. HORMONES (HORMONES) [Suspect]
     Indication: MENOPAUSE
     Dates: start: 19880101, end: 19890101
  4. PREMARIN [Suspect]
     Indication: MENOPAUSE
     Dosage: 0.9 MG, UNK, ORAL
     Route: 048
     Dates: start: 19910508, end: 19910515
  5. H2 BLOCKER ^RATIOPHARM^ (CIMETIDINE HYDROCHLORIDE) [Concomitant]
  6. PROVERA [Suspect]
     Indication: MENOPAUSE
     Dosage: 2.5 MG, UNK, ORAL
     Route: 048
     Dates: start: 19910818, end: 19950829
  7. ANUSOL-HC SUPPOSITORIES (BENZYL BENZOATE, BISMUTH HYDROXIDE, BISMUTH S [Concomitant]

REACTIONS (28)
  - FIBROADENOMA OF BREAST [None]
  - AORTIC ARTERIOSCLEROSIS [None]
  - MUSCLE SPASMS [None]
  - PAIN [None]
  - OSTEOPENIA [None]
  - BREAST HYPERPLASIA [None]
  - BREAST MASS [None]
  - INTERVERTEBRAL DISC DEGENERATION [None]
  - INJURY [None]
  - BREAST DISORDER [None]
  - LYMPH NODES SCAN ABNORMAL [None]
  - FALL [None]
  - EMOTIONAL DISORDER [None]
  - MASTECTOMY [None]
  - BIOPSY BREAST [None]
  - ANXIETY [None]
  - BREAST CYST [None]
  - BILIARY DILATATION [None]
  - DILATATION INTRAHEPATIC DUCT ACQUIRED [None]
  - RADIOTHERAPY [None]
  - EXPLORATORY OPERATION [None]
  - MAMMOGRAM ABNORMAL [None]
  - PAIN IN EXTREMITY [None]
  - BREAST CANCER IN SITU [None]
  - BREAST LUMP REMOVAL [None]
  - BREAST CALCIFICATIONS [None]
  - METAPLASIA [None]
  - DEFORMITY [None]
